FAERS Safety Report 8563863 (Version 4)
Quarter: 2012Q4

REPORT INFORMATION
  Report Type: 
  Country: US (occurrence: US)
  Receive Date: 20120515
  Receipt Date: 20121019
  Transmission Date: 20130627
  Serious: Yes (Other)
  Sender: FDA-Public Use
  Company Number: CHPA2012US010148

PATIENT
  Sex: Male

DRUGS (3)
  1. EXCEDRIN EXTRA STRENGTH [Suspect]
     Indication: PROPHYLAXIS
     Dosage: 3 DF, QHS
     Route: 048
  2. EXCEDRIN MIGRAINE [Suspect]
     Indication: PROPHYLAXIS
     Dosage: 3 DF, QHS
     Route: 048
  3. EXCEDRIN MIGRAINE [Concomitant]
     Indication: PROPHYLAXIS
     Dosage: 3 DF, QHS
     Route: 048

REACTIONS (8)
  - Vertigo [Recovered/Resolved]
  - Feeling abnormal [Recovered/Resolved]
  - Dizziness [Recovered/Resolved]
  - Balance disorder [Recovered/Resolved]
  - Headache [Recovered/Resolved]
  - Off label use [Unknown]
  - Therapeutic response unexpected [Unknown]
  - Incorrect drug administration duration [Unknown]
